FAERS Safety Report 25750893 (Version 1)
Quarter: 2025Q3

REPORT INFORMATION
  Report Type: Spontaneous
  Country: US (occurrence: US)
  Receive Date: 20250902
  Receipt Date: 20250902
  Transmission Date: 20251020
  Serious: No
  Sender: SANOFI AVENTIS
  Company Number: US-SA-2025SA261485

PATIENT
  Age: 7 Year
  Sex: Male

DRUGS (1)
  1. DUPIXENT [Suspect]
     Active Substance: DUPILUMAB
     Indication: Dermatitis atopic
     Dosage: 200 MG, Q4W
     Route: 065
     Dates: start: 202407

REACTIONS (6)
  - Eye inflammation [Unknown]
  - Ocular hyperaemia [Unknown]
  - Eye swelling [Unknown]
  - Eye pruritus [Unknown]
  - Blepharitis [Unknown]
  - Arthralgia [Unknown]
